FAERS Safety Report 20803026 (Version 2)
Quarter: 2022Q2

REPORT INFORMATION
  Report Type: Spontaneous
  Country: CN (occurrence: CN)
  Receive Date: 20220509
  Receipt Date: 20220510
  Transmission Date: 20220721
  Serious: Yes (Other)
  Sender: FDA-Public Use
  Company Number: CN-JNJFOC-20220510430

PATIENT

DRUGS (2)
  1. BUDESONIDE [Suspect]
     Active Substance: BUDESONIDE
     Indication: Sinusitis
     Dosage: ONCE IN EACH NOSTRIL
     Route: 045
  2. BUDESONIDE [Suspect]
     Active Substance: BUDESONIDE
     Indication: Nasal polyps

REACTIONS (4)
  - Post procedural haemorrhage [Unknown]
  - Obstructive airways disorder [Unknown]
  - Pruritus [Unknown]
  - Drug ineffective [Unknown]
